FAERS Safety Report 9903931 (Version 1)
Quarter: 2014Q1

REPORT INFORMATION
  Report Type: Spontaneous
  Country: US (occurrence: US)
  Receive Date: 20140218
  Receipt Date: 20140218
  Transmission Date: 20141002
  Serious: No
  Sender: FDA-Public Use
  Company Number: US-BIOGENIDEC-2014BI015674

PATIENT
  Sex: Female

DRUGS (14)
  1. TYSABRI [Suspect]
     Indication: MULTIPLE SCLEROSIS
     Route: 042
     Dates: start: 20070103, end: 20070228
  2. TYSABRI [Suspect]
     Indication: MULTIPLE SCLEROSIS
     Route: 042
     Dates: start: 20070627, end: 20130719
  3. TECFIDERA [Concomitant]
     Indication: PRODUCT USED FOR UNKNOWN INDICATION
  4. CYMBALTA [Concomitant]
     Indication: BREAKTHROUGH PAIN
     Route: 048
     Dates: start: 20130320, end: 20130424
  5. CYMBALTA [Concomitant]
     Indication: DISCOMFORT
     Route: 048
     Dates: start: 20130320, end: 20130424
  6. CYMBALTA [Concomitant]
     Indication: BREAKTHROUGH PAIN
     Route: 048
     Dates: start: 20130424
  7. CYMBALTA [Concomitant]
     Indication: DISCOMFORT
     Route: 048
     Dates: start: 20130424
  8. CYMBALTA [Concomitant]
     Indication: BREAKTHROUGH PAIN
     Route: 048
     Dates: start: 20131007
  9. CYMBALTA [Concomitant]
     Indication: DISCOMFORT
     Route: 048
     Dates: start: 20131007
  10. LUNESTA [Concomitant]
     Indication: PRODUCT USED FOR UNKNOWN INDICATION
     Route: 048
     Dates: start: 20130320
  11. PREMARIN [Concomitant]
     Indication: PRODUCT USED FOR UNKNOWN INDICATION
     Route: 048
     Dates: start: 20130320
  12. ZYRTEC [Concomitant]
     Indication: PRODUCT USED FOR UNKNOWN INDICATION
     Route: 048
  13. COPAXONE [Concomitant]
     Indication: MULTIPLE SCLEROSIS
     Dates: start: 2013
  14. SOLUMEDROL [Concomitant]
     Indication: MULTIPLE SCLEROSIS
     Route: 042
     Dates: start: 20130822

REACTIONS (10)
  - Vertigo [Unknown]
  - Reading disorder [Unknown]
  - Sciatica [Unknown]
  - Vision blurred [Unknown]
  - Coordination abnormal [Unknown]
  - Nystagmus [Unknown]
  - Anxiety [Unknown]
  - Dizziness [Unknown]
  - Malaise [Unknown]
  - Fatigue [Unknown]
